FAERS Safety Report 21526153 (Version 2)
Quarter: 2022Q4

REPORT INFORMATION
  Report Type: Spontaneous
  Country: FR (occurrence: FR)
  Receive Date: 20221031
  Receipt Date: 20221205
  Transmission Date: 20230113
  Serious: Yes (Life-Threatening, Hospitalization, Other)
  Sender: FDA-Public Use
  Company Number: FR-BAXTER-2022BAX022317

PATIENT
  Age: 62 Year
  Sex: Male

DRUGS (9)
  1. SUPRANE [Suspect]
     Active Substance: DESFLURANE
     Indication: Maintenance of anaesthesia
     Route: 065
  2. LACTATED RINGERS SOLUTION [Suspect]
     Active Substance: CALCIUM CHLORIDE\POTASSIUM CHLORIDE\SODIUM CHLORIDE\SODIUM LACTATE
     Dosage: INFUSED
     Route: 065
  3. PROPOFOL [Suspect]
     Active Substance: PROPOFOL
     Indication: Induction of anaesthesia
     Dosage: 300 MG
     Route: 065
  4. CHLORHEXIDINE [Suspect]
     Active Substance: CHLORHEXIDINE
     Indication: Sterilisation
     Dosage: A JUGULAR CENTRAL VENOUS ROUTE WAS BEING PLACED AFTER SEVERAL ATTEMPTS IN THE SUBCLAVIAN PERFORMED O
     Route: 065
  5. CISATRACURIUM [Suspect]
     Active Substance: CISATRACURIUM
     Indication: Induction of anaesthesia
     Dosage: 14 MG
     Route: 065
  6. SUFENTANIL [Suspect]
     Active Substance: SUFENTANIL
     Indication: Induction of anaesthesia
     Dosage: 20 UG
     Route: 065
  7. CEFOXITIN [Suspect]
     Active Substance: CEFOXITIN SODIUM
     Indication: Antibiotic prophylaxis
     Dosage: 2 G INFUSED WITH RINGER^S LACTATE.
     Route: 065
  8. BISACODYL [Concomitant]
     Active Substance: BISACODYL
     Indication: Bowel preparation
     Dosage: UNK
     Route: 048
  9. BISOPROLOL [Concomitant]
     Active Substance: BISOPROLOL
     Indication: Hypertension
     Dosage: UNK
     Route: 065

REACTIONS (4)
  - Pulseless electrical activity [Unknown]
  - Hypokinesia [Unknown]
  - Bronchospasm [Unknown]
  - Hypotension [Unknown]
